FAERS Safety Report 6843351-3 (Version None)
Quarter: 2010Q3

REPORT INFORMATION
  Report Type: 
  Country: None (occurrence: None)
  Receive Date: 20100715
  Receipt Date: 20100701
  Transmission Date: 20110219
  Serious: Yes (Hospitalization)
  Sender: FDA-Public Use
  Company Number: DE-RANBAXY-2010US-35427

PATIENT

DRUGS (5)
  1. CLOPIDOGREL BASICS 75MG FILMTABLETTEN [Suspect]
     Indication: CORONARY ANGIOPLASTY
     Dosage: 75 MG, UNK
     Route: 048
     Dates: start: 20100312, end: 20100430
  2. BISOPROLOL FUMARATE [Suspect]
     Indication: CORONARY ANGIOPLASTY
     Dosage: 1.25 MG 1 IN 1 D
     Route: 048
     Dates: start: 20100312, end: 20100401
  3. SIMVASTATINE 10 RANBAXY FILMOHULDE TABLETTEN 10MG [Suspect]
     Indication: CORONARY ANGIOPLASTY
     Dosage: 40 MG DAILY DOSE
     Route: 065
     Dates: start: 20100312, end: 20100401
  4. PERINDOPRIL TABLET 2 MG [Suspect]
     Indication: CORONARY ANGIOPLASTY
     Dosage: 4 MG, DAILY DOSE
     Route: 065
     Dates: start: 20100312, end: 20100401
  5. PANTOZOL [Suspect]
     Indication: CORONARY ANGIOPLASTY
     Dosage: 40 MG, 1 IN 1 D
     Route: 048
     Dates: start: 20100312, end: 20100401

REACTIONS (1)
  - HEPATITIS CHOLESTATIC [None]
